FAERS Safety Report 7646696-2 (Version None)
Quarter: 2011Q3

REPORT INFORMATION
  Report Type: 
  Country: None (occurrence: None)
  Receive Date: 20110711
  Receipt Date: 20110314
  Transmission Date: 20111222
  Serious: Yes (Other)
  Sender: FDA-Public Use
  Company Number: IPC201103-000301

PATIENT

DRUGS (3)
  1. REGLAN [Suspect]
     Dosage: ORAL
     Route: 048
     Dates: start: 20050101, end: 20101101
  2. METOCLOPRAMIDE HYDROCHLORIDE [Suspect]
     Dosage: ORAL
     Route: 048
     Dates: start: 20050101, end: 20101101
  3. METOCLOPRAMIDE HCL [Suspect]
     Dosage: ORAL
     Route: 048
     Dates: start: 20050101, end: 20101101

REACTIONS (6)
  - TARDIVE DYSKINESIA [None]
  - AKATHISIA [None]
  - DYSKINESIA [None]
  - DYSTONIA [None]
  - EXTRAPYRAMIDAL DISORDER [None]
  - TREMOR [None]
